FAERS Safety Report 7499337-1 (Version None)
Quarter: 2011Q2

REPORT INFORMATION
  Report Type: 
  Country: None (occurrence: None)
  Receive Date: 20110524
  Receipt Date: 20110511
  Transmission Date: 20111010
  Serious: Yes (Hospitalization, Other)
  Sender: FDA-Public Use
  Company Number: US-AMGEN-USASP2011024592

PATIENT
  Age: 57 Year
  Sex: Male

DRUGS (1)
  1. ENBREL [Suspect]
     Indication: PSORIASIS
     Dosage: 50 MG, 2 TIMES/WK
     Dates: start: 19980101, end: 20110301

REACTIONS (15)
  - POST PROCEDURAL COMPLICATION [None]
  - FALL [None]
  - LOCALISED INFECTION [None]
  - SUICIDAL BEHAVIOUR [None]
  - LOWER LIMB FRACTURE [None]
  - OEDEMA PERIPHERAL [None]
  - RENAL DISORDER [None]
  - NEUROPATHY PERIPHERAL [None]
  - IMPAIRED HEALING [None]
  - BRAIN INJURY [None]
  - CONFUSIONAL STATE [None]
  - FATIGUE [None]
  - PSORIASIS [None]
  - ANKLE FRACTURE [None]
  - ROAD TRAFFIC ACCIDENT [None]
